FAERS Safety Report 10078622 (Version 2)
Quarter: 2014Q2

REPORT INFORMATION
  Report Type: Spontaneous
  Country: US (occurrence: US)
  Receive Date: 20140415
  Receipt Date: 20140515
  Transmission Date: 20141212
  Serious: No
  Sender: FDA-Public Use
  Company Number: US-009507513-1404USA006147

PATIENT
  Age: 77 Year
  Sex: Female
  Weight: 63.49 kg

DRUGS (8)
  1. OXYTROL FOR WOMEN [Suspect]
     Indication: INCONTINENCE
     Dosage: 1 DF, Q4D
     Route: 062
     Dates: start: 20140328, end: 20140403
  2. CARBIDOPA (+) LEVODOPA [Concomitant]
     Indication: PARKINSON^S DISEASE
     Dosage: UNK, UNKNOWN
  3. MIRAPEX [Concomitant]
     Indication: PARKINSON^S DISEASE
     Dosage: UNK, UNKNOWN
  4. VESICARE [Concomitant]
     Indication: INCONTINENCE
     Dosage: UNK, UNKNOWN
  5. LOVASTATIN [Concomitant]
     Indication: BLOOD CHOLESTEROL
     Dosage: UNK, UNKNOWN
  6. PAXIL [Concomitant]
     Indication: DEPRESSION
     Dosage: UNK, UNKNOWN
  7. CHOLECALCIFEROL [Concomitant]
     Indication: PRODUCT USED FOR UNKNOWN INDICATION
     Dosage: UNK, UNKNOWN
  8. CYANOCOBALAMIN [Concomitant]
     Indication: PRODUCT USED FOR UNKNOWN INDICATION
     Dosage: UNK, UNKNOWN

REACTIONS (2)
  - Application site irritation [Recovered/Resolved]
  - Drug administered at inappropriate site [Unknown]
